FAERS Safety Report 12920809 (Version 1)
Quarter: 2016Q4

REPORT INFORMATION
  Report Type: Spontaneous
  Country: US (occurrence: US)
  Receive Date: 20161105
  Receipt Date: 20161105
  Transmission Date: 20170207
  Serious: Yes (Hospitalization)
  Sender: FDA-Public Use
  Company Number: None

PATIENT
  Age: 75 Year
  Sex: Male
  Weight: 75.6 kg

DRUGS (1)
  1. LEVETIRACETAM. [Suspect]
     Active Substance: LEVETIRACETAM
     Indication: CONFUSIONAL STATE
     Route: 048
     Dates: start: 20160830, end: 20160915

REACTIONS (2)
  - Confusional state [None]
  - Asthenia [None]

NARRATIVE: CASE EVENT DATE: 20160830
